FAERS Safety Report 19111536 (Version 1)
Quarter: 2021Q2

REPORT INFORMATION
  Report Type: Spontaneous
  Country: US (occurrence: US)
  Receive Date: 20210408
  Receipt Date: 20210408
  Transmission Date: 20210717
  Serious: Yes (Life-Threatening)
  Sender: FDA-Public Use
  Company Number: None

PATIENT
  Age: 56 Year
  Sex: Female
  Weight: 54 kg

DRUGS (3)
  1. XANAX [Concomitant]
     Active Substance: ALPRAZOLAM
     Dates: start: 20210408, end: 20210408
  2. LIDOCAINE. [Concomitant]
     Active Substance: LIDOCAINE
     Dates: start: 20210408, end: 20210408
  3. TRANEXAMIC ACID. [Suspect]
     Active Substance: TRANEXAMIC ACID
     Indication: HAEMORRHAGE
     Dosage: ?          OTHER FREQUENCY:SINGLE DOSE;?
     Route: 058
     Dates: start: 20210408, end: 20210408

REACTIONS (2)
  - Loss of consciousness [None]
  - Seizure [None]

NARRATIVE: CASE EVENT DATE: 20210408
